FAERS Safety Report 18683207 (Version 4)
Quarter: 2021Q2

REPORT INFORMATION
  Report Type: Report from Study
  Country: CO (occurrence: CO)
  Receive Date: 20201230
  Receipt Date: 20210420
  Transmission Date: 20210717
  Serious: Yes (Hospitalization, Other)
  Sender: FDA-Public Use
  Company Number: CO-TAKEDA-2020TUS045296

PATIENT
  Age: 41 Year
  Sex: Female
  Weight: 52 kg

DRUGS (1)
  1. VEDOLIZUMAB [Suspect]
     Active Substance: VEDOLIZUMAB
     Indication: CROHN^S DISEASE
     Dosage: 300 MILLIGRAM
     Route: 042
     Dates: start: 20201001

REACTIONS (23)
  - Asthenia [Not Recovered/Not Resolved]
  - Muscle spasms [Recovering/Resolving]
  - Syncope [Recovering/Resolving]
  - Dizziness [Not Recovered/Not Resolved]
  - Swelling face [Recovering/Resolving]
  - Discouragement [Not Recovered/Not Resolved]
  - Fatigue [Recovering/Resolving]
  - Diarrhoea haemorrhagic [Not Recovered/Not Resolved]
  - Pelvic inflammatory disease [Recovering/Resolving]
  - Abdominal pain [Not Recovered/Not Resolved]
  - Abdominal pain upper [Recovering/Resolving]
  - Headache [Not Recovered/Not Resolved]
  - Vomiting [Not Recovered/Not Resolved]
  - Faeces discoloured [Recovering/Resolving]
  - Haemoglobin decreased [Recovering/Resolving]
  - Pallor [Not Recovered/Not Resolved]
  - Mucous stools [Not Recovered/Not Resolved]
  - Weight increased [Unknown]
  - Chills [Not Recovered/Not Resolved]
  - Inflammation [Recovering/Resolving]
  - Haemorrhage [Recovering/Resolving]
  - Diarrhoea [Recovering/Resolving]
  - Weight decreased [Recovering/Resolving]

NARRATIVE: CASE EVENT DATE: 20201017
